FAERS Safety Report 18039895 (Version 8)
Quarter: 2021Q3

REPORT INFORMATION
  Report Type: Report from Study
  Country: US (occurrence: US)
  Receive Date: 20200717
  Receipt Date: 20210719
  Transmission Date: 20211014
  Serious: Yes (Hospitalization, Other)
  Sender: FDA-Public Use
  Company Number: NVSC2020US199524

PATIENT
  Age: 22 Day
  Sex: Male

DRUGS (1)
  1. ZOLGENSMA [Suspect]
     Active Substance: ONASEMNOGENE ABEPARVOVEC-XIOI
     Indication: SPINAL MUSCULAR ATROPHY
     Dosage: 1.1 KG, ONCE/SINGLE (1.1X10E14VGPER KG)
     Route: 042
     Dates: start: 20200708

REACTIONS (9)
  - Fibrin D dimer increased [Unknown]
  - Troponin increased [Unknown]
  - Seizure [Unknown]
  - Pallor [Not Recovered/Not Resolved]
  - Fontanelle depressed [Unknown]
  - Blood glucose decreased [Unknown]
  - Hepatic enzyme increased [Not Recovered/Not Resolved]
  - Diarrhoea [Not Recovered/Not Resolved]
  - Aspiration [Recovering/Resolving]

NARRATIVE: CASE EVENT DATE: 20200714
